FAERS Safety Report 9026427 (Version 1)
Quarter: 2013Q1

REPORT INFORMATION
  Report Type: Spontaneous
  Country: FR (occurrence: FR)
  Receive Date: 20130123
  Receipt Date: 20130123
  Transmission Date: 20140127
  Serious: Yes (Other)
  Sender: FDA-Public Use
  Company Number: FR-JNJFOC-20130111779

PATIENT
  Sex: Female

DRUGS (2)
  1. INFLIXIMAB, RECOMBINANT [Suspect]
     Indication: PUSTULAR PSORIASIS
     Route: 042
  2. ETANERCEPT [Suspect]
     Indication: PUSTULAR PSORIASIS
     Route: 065

REACTIONS (5)
  - Hypersensitivity [Unknown]
  - Urticaria [Unknown]
  - Paronychia [Unknown]
  - Blepharitis [Unknown]
  - Conjunctivitis [Unknown]
